FAERS Safety Report 18457500 (Version 1)
Quarter: 2020Q4

REPORT INFORMATION
  Report Type: Spontaneous
  Country: FR (occurrence: FR)
  Receive Date: 20201030
  Receipt Date: 20201030
  Transmission Date: 20210114
  Serious: Yes (Hospitalization)
  Sender: FDA-Public Use
  Company Number: NVSC2020FR288079

PATIENT
  Age: 71 Year
  Sex: Male

DRUGS (3)
  1. GENTAMICINE [Suspect]
     Active Substance: GENTAMICIN
     Indication: ENDOCARDITIS
     Dosage: 1 UNK, QD (240MG LE 02/02 PUIS 270MG LE 04/02)
     Route: 042
     Dates: start: 20180202, end: 20180204
  2. FUROSEMIDE. [Suspect]
     Active Substance: FUROSEMIDE
     Indication: CARDIAC FAILURE ACUTE
     Dosage: 40 MG, QD
     Route: 065
     Dates: start: 20180203, end: 20180220
  3. CLOXACILLIN [Suspect]
     Active Substance: CLOXACILLIN
     Indication: ENDOCARDITIS
     Dosage: 15 G, QD (EN 3 INJECTIONS)
     Route: 042
     Dates: start: 20180202, end: 20180220

REACTIONS (1)
  - Acute kidney injury [Recovered/Resolved]

NARRATIVE: CASE EVENT DATE: 20180204
